FAERS Safety Report 18623458 (Version 2)
Quarter: 2021Q1

REPORT INFORMATION
  Report Type: Report from Study
  Country: FR (occurrence: FR)
  Receive Date: 20201216
  Receipt Date: 20210324
  Transmission Date: 20210419
  Serious: Yes (Other)
  Sender: FDA-Public Use
  Company Number: FR-JNJFOC-20201214149

PATIENT

DRUGS (5)
  1. REMICADE [Suspect]
     Active Substance: INFLIXIMAB
     Route: 042
  2. NIVOLUMAB [Suspect]
     Active Substance: NIVOLUMAB
     Route: 065
  3. REMICADE [Suspect]
     Active Substance: INFLIXIMAB
     Indication: METASTATIC MALIGNANT MELANOMA
     Route: 042
  4. NIVOLUMAB [Suspect]
     Active Substance: NIVOLUMAB
     Indication: METASTATIC MALIGNANT MELANOMA
     Route: 065
  5. IPILIMUMAB [Suspect]
     Active Substance: IPILIMUMAB
     Indication: METASTATIC MALIGNANT MELANOMA
     Dosage: FOR 4 DOSES
     Route: 065

REACTIONS (25)
  - Pneumonia [Unknown]
  - Endocrine disorder [Unknown]
  - Colitis [Unknown]
  - Gastrointestinal disorder [Unknown]
  - Hepatocellular injury [Unknown]
  - Respiratory disorder [Unknown]
  - Product use in unapproved indication [Unknown]
  - Cardiac disorder [Unknown]
  - Injection site reaction [Unknown]
  - Nausea [Unknown]
  - Nervous system disorder [Unknown]
  - Mediastinal disorder [Unknown]
  - Diarrhoea [Unknown]
  - Rash maculo-papular [Unknown]
  - Pruritus [Unknown]
  - Fatigue [Unknown]
  - Adverse event [Unknown]
  - Ejection fraction abnormal [Unknown]
  - Aspartate aminotransferase abnormal [Unknown]
  - Off label use [Unknown]
  - Hepatobiliary disease [Unknown]
  - General symptom [Unknown]
  - Skin disorder [Unknown]
  - Angiopathy [Unknown]
  - Administration site reaction [Unknown]
